FAERS Safety Report 7015953-5 (Version None)
Quarter: 2010Q3

REPORT INFORMATION
  Report Type: 
  Country: None (occurrence: None)
  Receive Date: 20100927
  Receipt Date: 20090824
  Transmission Date: 20110219
  Serious: No
  Sender: FDA-Public Use
  Company Number: US-ASTRAZENECA-2009SE09531

PATIENT
  Age: 86 Year
  Sex: Female
  Weight: 55.3 kg

DRUGS (3)
  1. ARIMIDEX [Suspect]
     Route: 048
  2. ATENOLOL [Concomitant]
     Indication: HYPERTENSION
  3. VITAMINS [Concomitant]

REACTIONS (3)
  - ARTHRALGIA [None]
  - BODY HEIGHT DECREASED [None]
  - FALL [None]
